FAERS Safety Report 6168162-6 (Version None)
Quarter: 2009Q2

REPORT INFORMATION
  Report Type: 
  Country: None (occurrence: None)
  Receive Date: 20090423
  Receipt Date: 20090423
  Transmission Date: 20091009
  Serious: Yes (Hospitalization)
  Sender: FDA-Public Use
  Company Number: None

PATIENT

DRUGS (1)
  1. RYTHMOL [Suspect]

REACTIONS (3)
  - ACUTE RESPIRATORY FAILURE [None]
  - DRUG TOXICITY [None]
  - PULMONARY OEDEMA [None]
